FAERS Safety Report 7328084-1 (Version None)
Quarter: 2011Q1

REPORT INFORMATION
  Report Type: 
  Country: None (occurrence: None)
  Receive Date: 20110303
  Receipt Date: 20110224
  Transmission Date: 20110831
  Serious: Yes (Hospitalization)
  Sender: FDA-Public Use
  Company Number: CZ-NOVOPROD-324163

PATIENT

DRUGS (7)
  1. HUMALOG [Suspect]
     Indication: TYPE 1 DIABETES MELLITUS
     Dosage: 15 IU, TID
     Route: 064
  2. HUMALOG [Suspect]
     Dosage: 100 IU, QD (10+30+30+30)
     Route: 064
  3. METHYLDOPA [Concomitant]
     Dosage: 4X1 TBL FROM 30TH WEEK
     Route: 064
  4. LEVEMIR [Suspect]
     Dosage: 74 IU, QD
     Route: 064
     Dates: start: 20070101
  5. METHYLDOPA [Concomitant]
     Indication: GESTATIONAL HYPERTENSION
     Dosage: 2X1 TBL FROM 18TH WEEK
     Route: 064
  6. LEVEMIR [Suspect]
     Dosage: 50 IU, QD
     Route: 064
  7. LEVEMIR [Suspect]
     Dosage: 76 UNK, (36+0+0+40)
     Route: 064

REACTIONS (2)
  - LARGE FOR DATES BABY [None]
  - DRUG EXPOSURE DURING PREGNANCY [None]
